FAERS Safety Report 7236841-5 (Version None)
Quarter: 2011Q1

REPORT INFORMATION
  Report Type: 
  Country: None (occurrence: None)
  Receive Date: 20110120
  Receipt Date: 20110118
  Transmission Date: 20110831
  Serious: Yes (Other)
  Sender: FDA-Public Use
  Company Number: US-AMGEN-USASP2010010589

PATIENT

DRUGS (3)
  1. CORTICOSTEROIDS [Concomitant]
     Dosage: UNK
     Dates: start: 20100422
  2. IMMUNOGLOBULINS [Concomitant]
     Dosage: UNK
     Route: 042
     Dates: start: 20100428
  3. NPLATE [Suspect]
     Indication: IDIOPATHIC THROMBOCYTOPENIC PURPURA
     Dosage: 740 A?G, UNK
     Dates: start: 20100101, end: 20100827

REACTIONS (2)
  - MYELODYSPLASTIC SYNDROME [None]
  - THERAPEUTIC RESPONSE DECREASED [None]
